FAERS Safety Report 25856606 (Version 1)
Quarter: 2025Q3

REPORT INFORMATION
  Report Type: Spontaneous
  Country: JP (occurrence: JP)
  Receive Date: 20250929
  Receipt Date: 20250929
  Transmission Date: 20251020
  Serious: Yes (Other)
  Sender: CHEPLAPHARM
  Company Number: None

PATIENT
  Age: 75 Year
  Sex: Male
  Weight: 50 kg

DRUGS (13)
  1. CAPECITABINE [Suspect]
     Active Substance: CAPECITABINE
     Indication: Rectal cancer stage III
     Dosage: DAILY DOSE: 900 MILLIGRAM
     Route: 048
     Dates: start: 2013, end: 2013
  2. CAPECITABINE [Suspect]
     Active Substance: CAPECITABINE
     Indication: Rectal cancer stage III
     Dosage: DAILY DOSE: 600 MILLIGRAM
     Route: 048
     Dates: start: 2013, end: 2013
  3. CAPECITABINE [Suspect]
     Active Substance: CAPECITABINE
     Indication: Rectal cancer stage III
     Dosage: DAY 1 - DAY 14; [BODY SURFACE AREA 1.438 M2 (CAPECITABINE 3000 MG/DAY, OXALIPLATIN 180 MG)]
     Dates: start: 201304
  4. CAPECITABINE [Suspect]
     Active Substance: CAPECITABINE
     Indication: Rectal cancer stage III
     Dosage: DAY 1 - DAY 14; CAPEOX?DAILY DOSE: 1500 MILLIGRAM
     Route: 048
     Dates: start: 20130417, end: 2013
  5. CAPECITABINE [Suspect]
     Active Substance: CAPECITABINE
     Indication: Rectal cancer stage III
     Dosage: FOURTH CYCLE ?DAILY DOSE: 1200 MILLIGRAM
     Dates: end: 201307
  6. CAPECITABINE [Suspect]
     Active Substance: CAPECITABINE
     Indication: Rectal cancer stage III
     Dosage: DAY 1 - DAY 14; CAPEOX; SECOND CYCLE?DAILY DOSE: 2400 MILLIGRAM
  7. CAPECITABINE [Suspect]
     Active Substance: CAPECITABINE
     Indication: Rectal cancer stage III
     Dosage: THIRD CYCLE ?DAILY DOSE: 1800 MILLIGRAM
  8. OXALIPLATIN [Suspect]
     Active Substance: OXALIPLATIN
     Indication: Rectal cancer stage III
     Dosage: CAPEOX; (DAY 1), 21 DAYS PER CYCLE; [BODY SURFACE AREA 1.438 M2 (CAPECITABINE 3000 MG/DAY, OXALIP...
     Dates: start: 201304
  9. OXALIPLATIN [Suspect]
     Active Substance: OXALIPLATIN
     Indication: Rectal cancer stage III
  10. OXALIPLATIN [Suspect]
     Active Substance: OXALIPLATIN
     Indication: Rectal cancer stage III
  11. TEGAFUR [Concomitant]
     Active Substance: TEGAFUR
     Indication: Rectal cancer stage III
  12. GIMERACIL [Concomitant]
     Active Substance: GIMERACIL
     Indication: Rectal cancer stage III
  13. OTERACIL [Concomitant]
     Active Substance: OTERACIL
     Indication: Rectal cancer stage III

REACTIONS (11)
  - Alcoholic liver disease [Recovered/Resolved]
  - Drug-induced liver injury [Unknown]
  - Ascites [Recovered/Resolved]
  - Thrombocytopenia [Not Recovered/Not Resolved]
  - Malaise [Unknown]
  - Decreased appetite [Unknown]
  - Blood bilirubin increased [Unknown]
  - Condition aggravated [Unknown]
  - Jaundice [Unknown]
  - Electrolyte imbalance [Unknown]
  - Splenomegaly [Not Recovered/Not Resolved]

NARRATIVE: CASE EVENT DATE: 20130101
